FAERS Safety Report 9228292 (Version 1)
Quarter: 2013Q1

REPORT INFORMATION
  Report Type: Spontaneous
  Country: US (occurrence: None)
  Receive Date: 20121024
  Receipt Date: 20121024
  Transmission Date: 20140127
  Serious: Yes (Other)
  Sender: FDA-Public Use
  Company Number: DSA_57514_2012

PATIENT
  Sex: Female

DRUGS (21)
  1. WELLBUTRIN (NOT SPECIFIED) [Suspect]
  2. PROTONIX [Concomitant]
  3. SPIRIVA [Concomitant]
  4. SYMBICORT [Concomitant]
  5. VENTOLIN HFA [Concomitant]
  6. ADDERALL [Concomitant]
  7. CELEXA [Concomitant]
  8. KLONOPIN [Concomitant]
  9. SEROQUEL [Concomitant]
  10. PHENYTOIN [Concomitant]
  11. CYANOCOBALAMIN [Concomitant]
  12. SENOKOT [Concomitant]
  13. LEVOTHYROXIN [Concomitant]
  14. COLECALCIFEROL [Concomitant]
  15. CLARINEX [Concomitant]
  16. ESTROGEN NOS W/ METHYLTESTOSTERONE [Concomitant]
  17. BIOTIN [Concomitant]
  18. PARACETAMOL [Concomitant]
  19. SAXAGLIPTIN [Concomitant]
  20. METFORMIN HYDROCHLORIDE [Concomitant]
  21. GLIPIZIDE [Concomitant]

REACTIONS (1)
  - Convulsion [None]
